FAERS Safety Report 4601516-5 (Version None)
Quarter: 2005Q1

REPORT INFORMATION
  Report Type: 
  Country: None (occurrence: None)
  Receive Date: 20050307
  Receipt Date: 20050307
  Transmission Date: 20050727
  Serious: Yes (Hospitalization)
  Sender: FDA-Public Use
  Company Number: None

PATIENT
  Sex: Male
  Weight: 60 kg

DRUGS (8)
  1. GEMCITABINE (1000 MG/M2, DAY 2 OF 28 DAY CYCLE BEG CYCLE 2) [Suspect]
     Indication: HEPATIC NEOPLASM MALIGNANT
     Dosage: 1690 IV
     Route: 042
     Dates: start: 20050208, end: 20050223
  2. OXALIPLATIN (85 MG/M2, DAYS 2 OF 28 DAY CYCLE BEG. CYCLE 2) [Suspect]
     Indication: HEPATIC NEOPLASM MALIGNANT
     Dosage: 144 IV
     Route: 042
     Dates: start: 20050208, end: 20050223
  3. BEVACIZUMAB (10MG/KG DAYS 1 OF 28 DAY CYCLE) [Suspect]
     Indication: HEPATIC NEOPLASM MALIGNANT
     Dosage: 603 IV
     Route: 042
     Dates: start: 20050208, end: 20050222
  4. OXYCONTIN [Concomitant]
  5. OXYCODONE HCL [Concomitant]
  6. ATIVAN [Concomitant]
  7. COMPAZINE [Concomitant]
  8. ZOFRAN [Concomitant]

REACTIONS (3)
  - CHILLS [None]
  - DRUG TOXICITY [None]
  - PYREXIA [None]
